FAERS Safety Report 8914609 (Version 1)
Quarter: 2012Q4

REPORT INFORMATION
  Report Type: 
  Country: DE (occurrence: DE)
  Receive Date: 20121119
  Receipt Date: 20121119
  Transmission Date: 20130627
  Serious: Yes (Death, Other)
  Sender: FDA-Public Use
  Company Number: DE-ASTRAZENECA-2012SE86542

PATIENT
  Age: 37 Year
  Sex: Female

DRUGS (10)
  1. SEROQUEL PROLONG [Suspect]
     Route: 048
  2. SEROQUEL PROLONG [Suspect]
     Route: 048
     Dates: start: 2008
  3. KEPPRA [Suspect]
     Route: 048
  4. AMISULPRIDE [Suspect]
     Route: 048
  5. DIPIPERON [Suspect]
     Route: 048
  6. DIPIPERON [Suspect]
     Dosage: 40 mg as required, max. 4 / day
     Route: 048
  7. TAVOR [Suspect]
     Dosage: 1 mg as required, max. 3x/24h
     Route: 048
  8. ZOPICLONE [Suspect]
     Dosage: 7.5 mg as required, max. 1 / day
     Route: 048
  9. METFORMIN [Concomitant]
  10. AKINETON [Concomitant]
     Dosage: 2 mg as required, max. 4 mg/day,
     Route: 048

REACTIONS (8)
  - Death [Fatal]
  - Electrocardiogram QT prolonged [Unknown]
  - Treatment noncompliance [Unknown]
  - Nodal rhythm [None]
  - Supraventricular extrasystoles [None]
  - Sinus tachycardia [None]
  - Drug level increased [None]
  - Crying [None]
